FAERS Safety Report 6826642-1 (Version None)
Quarter: 2010Q3

REPORT INFORMATION
  Report Type: 
  Country: None (occurrence: None)
  Receive Date: 20100709
  Receipt Date: 20100628
  Transmission Date: 20110219
  Serious: Yes (Other)
  Sender: FDA-Public Use
  Company Number: BR-PFIZER INC-2010080278

PATIENT
  Age: 31 Year
  Sex: Female

DRUGS (3)
  1. CHAMPIX [Suspect]
     Indication: SMOKING CESSATION THERAPY
     Dosage: UNK
     Route: 048
     Dates: start: 20090501, end: 20090101
  2. CHAMPIX [Suspect]
     Dosage: UNK
     Route: 048
     Dates: start: 20091201
  3. CHAMPIX [Suspect]
     Dosage: 1 TABLET PER DAY
     Route: 048
     Dates: start: 20100601

REACTIONS (3)
  - ANXIETY [None]
  - DEPRESSION [None]
  - NERVOUSNESS [None]
